FAERS Safety Report 9529262 (Version 2)
Quarter: 2014Q1

REPORT INFORMATION
  Report Type: Spontaneous
  Country: US (occurrence: None)
  Receive Date: 20130329
  Receipt Date: 20130627
  Transmission Date: 20141002
  Serious: No
  Sender: FDA-Public Use
  Company Number: 1000042689

PATIENT
  Age: 80 Year
  Sex: Male

DRUGS (1)
  1. LINZESS (LINACLOTIDE) (145 MICROGRAM, CAPSULES) [Suspect]
     Indication: CONSTIPATION
     Dosage: 145MCG (145 MCG, 1 IN 1 D), ORAL
     Route: 048
     Dates: start: 201301

REACTIONS (3)
  - Diarrhoea [None]
  - Abdominal pain [None]
  - Neuralgia [None]
